FAERS Safety Report 4997857-2 (Version None)
Quarter: 2006Q2

REPORT INFORMATION
  Report Type: 
  Country: None (occurrence: None)
  Receive Date: 20060505
  Receipt Date: 20060505
  Transmission Date: 20061013
  Serious: No
  Sender: FDA-Public Use
  Company Number: None

PATIENT
  Age: 67 Year
  Sex: Female
  Weight: 57.6068 kg

DRUGS (1)
  1. PAXIL [Suspect]

REACTIONS (5)
  - ABDOMINAL DISTENSION [None]
  - CONSTIPATION [None]
  - DIABETES MELLITUS [None]
  - GASTRIC DISORDER [None]
  - NERVOUSNESS [None]
